FAERS Safety Report 4462899-2 (Version None)
Quarter: 2004Q3

REPORT INFORMATION
  Report Type: 
  Country: None (occurrence: None)
  Receive Date: 20040927
  Receipt Date: 20040910
  Transmission Date: 20050211
  Serious: Yes (Other)
  Sender: FDA-Public Use
  Company Number: 2004-DE-04800GD

PATIENT

DRUGS (1)
  1. DIPYRIDAMOLE [Suspect]
     Indication: STRESS ECHOCARDIOGRAM
     Dosage: IV
     Route: 042

REACTIONS (2)
  - CARDIAC PROCEDURE COMPLICATION [None]
  - VENTRICULAR TACHYCARDIA [None]
